FAERS Safety Report 7089486-4 (Version None)
Quarter: 2010Q4

REPORT INFORMATION
  Report Type: 
  Country: None (occurrence: None)
  Receive Date: 20101108
  Receipt Date: 20101103
  Transmission Date: 20110411
  Serious: Yes (Other)
  Sender: FDA-Public Use
  Company Number: US-PFIZER INC-2002068508

PATIENT
  Sex: Male
  Weight: 70.31 kg

DRUGS (11)
  1. ZOLOFT [Suspect]
     Dosage: QD
     Route: 048
     Dates: start: 20010101
  2. LORAZEPAM [Suspect]
  3. ATIVAN [Suspect]
  4. CLONAZEPAM [Concomitant]
  5. HYDROXYZINE EMBONATE [Concomitant]
  6. ZALEPLON [Concomitant]
  7. ZOLPIDEM TARTRATE [Concomitant]
  8. ONDANSETRON HCL [Concomitant]
  9. DOMPERIDONE [Concomitant]
  10. CISAPRIDE [Concomitant]
  11. PETHIDINE HCL [Concomitant]

REACTIONS (5)
  - DRUG INEFFECTIVE [None]
  - EJACULATION DELAYED [None]
  - RESTLESSNESS [None]
  - TINNITUS [None]
  - URINARY RETENTION [None]
